FAERS Safety Report 6142100-4 (Version None)
Quarter: 2009Q2

REPORT INFORMATION
  Report Type: 
  Country: None (occurrence: None)
  Receive Date: 20090402
  Receipt Date: 20090330
  Transmission Date: 20091009
  Serious: No
  Sender: FDA-Public Use
  Company Number: US-B.I. PHARMACEUTICALS,INC./RIDGEFIELD-2009-BP-03363BP

PATIENT
  Sex: Male

DRUGS (3)
  1. CATAPRES-TTS-1 [Suspect]
     Indication: HYPERTENSION
     Dosage: .1MG
     Route: 061
     Dates: start: 20081201, end: 20090316
  2. NIFEDIPONE [Concomitant]
     Indication: HYPERTENSION
  3. TRIAMTERINE [Concomitant]
     Indication: HYPERTENSION

REACTIONS (4)
  - APPLICATION SITE BURN [None]
  - DIZZINESS [None]
  - NAUSEA [None]
  - OVERDOSE [None]
